FAERS Safety Report 8317996-8 (Version None)
Quarter: 2012Q2

REPORT INFORMATION
  Report Type: 
  Country: None (occurrence: None)
  Receive Date: 20120427
  Receipt Date: 20120418
  Transmission Date: 20120825
  Serious: Yes (Death)
  Sender: FDA-Public Use
  Company Number: CA-ELI_LILLY_AND_COMPANY-CA201204006428

PATIENT
  Age: 93 Year
  Sex: Female

DRUGS (8)
  1. FORTEO [Suspect]
     Indication: OSTEOPOROSIS
     Dosage: 20 UG, QD
     Route: 058
     Dates: start: 20110608
  2. CALCIUM [Concomitant]
  3. CALCITONIN SALMON [Concomitant]
  4. VITAMIN D [Concomitant]
  5. COZAAR [Concomitant]
     Dosage: 50 MG, UNKNOWN
  6. RABEPRAZOLE SODIUM [Concomitant]
     Dosage: 20 MG, UNKNOWN
  7. NORVASC [Concomitant]
     Dosage: 7.5 MG, UNKNOWN
  8. ALENDRONATE SODIUM [Concomitant]

REACTIONS (1)
  - DEATH [None]
